FAERS Safety Report 8256302-4 (Version None)
Quarter: 2012Q2

REPORT INFORMATION
  Report Type: 
  Country: None (occurrence: None)
  Receive Date: 20120403
  Receipt Date: 20120326
  Transmission Date: 20120825
  Serious: Yes (Other)
  Sender: FDA-Public Use
  Company Number: US-RB-036934-12

PATIENT
  Age: 50 Year
  Sex: Female

DRUGS (3)
  1. DELSYM [Suspect]
     Indication: DRUG ABUSE
     Dosage: ABOUT TWO WEEKS ADDED
     Route: 048
  2. PROZAC [Concomitant]
     Indication: PRODUCT USED FOR UNKNOWN INDICATION
  3. DELSYM [Suspect]
     Dosage: ABOUT TWO WEEKS ADDED
     Route: 048

REACTIONS (5)
  - DRUG ABUSE [None]
  - ABNORMAL BEHAVIOUR [None]
  - EUPHORIC MOOD [None]
  - OVERDOSE [None]
  - INCORRECT DRUG ADMINISTRATION DURATION [None]
